FAERS Safety Report 5364332-5 (Version None)
Quarter: 2007Q2

REPORT INFORMATION
  Report Type: 
  Country: None (occurrence: None)
  Receive Date: 20070618
  Receipt Date: 20070608
  Transmission Date: 20071010
  Serious: Yes (Other)
  Sender: FDA-Public Use
  Company Number: 2007AL002331

PATIENT
  Age: 53 Year
  Sex: Male

DRUGS (5)
  1. CITALOPRAM HYDROBROMIDE [Suspect]
     Dosage: 40 MG; QD;PO
     Route: 048
     Dates: start: 20060501, end: 20070101
  2. METFORMIN HCL [Concomitant]
  3. PRAVASTATIN [Concomitant]
  4. ACETYLSALICYLIC ACID SRT [Concomitant]
  5. SILDENAFIL CITRATE [Concomitant]

REACTIONS (2)
  - NIGHTMARE [None]
  - SPOUSAL ABUSE [None]
